FAERS Safety Report 10041682 (Version 1)
Quarter: 2014Q1

REPORT INFORMATION
  Report Type: Spontaneous
  Country: US (occurrence: US)
  Receive Date: 20140327
  Receipt Date: 20140327
  Transmission Date: 20141002
  Serious: Yes (Other)
  Sender: FDA-Public Use
  Company Number: PHHY2014US032211

PATIENT
  Age: 83 Year
  Sex: Female

DRUGS (7)
  1. HYDRALAZINE [Suspect]
     Indication: HYPERTENSION
     Dosage: 75 MG, BID
  2. METOPROLOL [Concomitant]
     Indication: HYPERTENSION
     Dosage: 25 MG, BID
  3. METOPROLOL [Concomitant]
     Dosage: 50 MG, BID
  4. FELODIPINE [Concomitant]
     Indication: HYPERTENSION
     Dosage: 5 MG, QD
  5. FUROSEMIDE [Concomitant]
     Indication: HYPERTENSION
     Dosage: 20 MG, QD
  6. LEVOTHYROXINE [Concomitant]
     Indication: GOITRE
     Dosage: 100 UG,
  7. LOSARTAN [Concomitant]
     Indication: HYPERTENSION
     Dosage: 75 MG, QD

REACTIONS (10)
  - Glomerulonephritis [Unknown]
  - Hypersensitivity vasculitis [Unknown]
  - Rash pruritic [Unknown]
  - Blood creatinine increased [Unknown]
  - Pallor [Unknown]
  - Excoriation [Unknown]
  - Erythema [Unknown]
  - Petechiae [Unknown]
  - Ecchymosis [Unknown]
  - Renal failure acute [Unknown]
